FAERS Safety Report 23976355 (Version 1)
Quarter: 2024Q2

REPORT INFORMATION
  Report Type: Spontaneous
  Country: US (occurrence: None)
  Receive Date: 20240613
  Receipt Date: 20240613
  Transmission Date: 20240715
  Serious: Yes (Hospitalization, Other)
  Sender: FDA-Public Use
  Company Number: None

PATIENT
  Age: 68 Year
  Sex: Female
  Weight: 61 kg

DRUGS (2)
  1. CEFEPIME [Suspect]
     Active Substance: CEFEPIME HYDROCHLORIDE
     Indication: Cellulitis
     Dosage: 3 G GRAM(S) ONCE INTRAVENOUS DRIP
     Route: 041
     Dates: start: 20240601, end: 20240601
  2. VANCOMYCIN [Concomitant]
     Active Substance: VANCOMYCIN
     Dates: start: 20240601, end: 20240601

REACTIONS (4)
  - Dialysis [None]
  - Lethargy [None]
  - Mental status changes [None]
  - Toxic encephalopathy [None]

NARRATIVE: CASE EVENT DATE: 20240604
